FAERS Safety Report 15692867 (Version 1)
Quarter: 2018Q4

REPORT INFORMATION
  Report Type: Report from Study
  Country: None (occurrence: US)
  Receive Date: 20181206
  Receipt Date: 20181206
  Transmission Date: 20190205
  Serious: Yes (Hospitalization)
  Sender: FDA-Public Use
  Company Number: US-ABBVIE-18K-163-2572483-00

PATIENT
  Age: 62 Year
  Sex: Female

DRUGS (2)
  1. HUMIRA [Suspect]
     Active Substance: ADALIMUMAB
     Indication: RHEUMATOID ARTHRITIS
     Dosage: STOPPED FOR SURGERY
     Route: 058
     Dates: start: 2017, end: 201811
  2. HUMIRA [Suspect]
     Active Substance: ADALIMUMAB
     Indication: CROHN^S DISEASE
     Route: 058
     Dates: start: 20181116

REACTIONS (6)
  - Joint ankylosis [Recovering/Resolving]
  - Injection site hypoaesthesia [Unknown]
  - Injection site paraesthesia [Unknown]
  - Arthralgia [Recovering/Resolving]
  - Arthritis [Recovering/Resolving]
  - Injection site pain [Unknown]

NARRATIVE: CASE EVENT DATE: 201810
